FAERS Safety Report 7409028-0 (Version None)
Quarter: 2011Q2

REPORT INFORMATION
  Report Type: 
  Country: None (occurrence: None)
  Receive Date: 20110412
  Receipt Date: 20110331
  Transmission Date: 20111010
  Serious: Yes (Other)
  Sender: FDA-Public Use
  Company Number: PHHY2011PK26552

PATIENT
  Age: 17 Year
  Sex: Male

DRUGS (3)
  1. MYCOPHENOLATE MOFETIL [Concomitant]
     Indication: RENAL TRANSPLANT
     Dosage: 1 G, BID
  2. TACROLIMUS [Suspect]
     Indication: RENAL TRANSPLANT
     Dosage: 6 MG, BID
  3. PREDNISOLONE [Concomitant]
     Dosage: 5 MG, QD

REACTIONS (14)
  - DIABETIC KETOACIDOSIS [None]
  - HEART RATE INCREASED [None]
  - NOCTURIA [None]
  - DECREASED APPETITE [None]
  - IRRITABILITY [None]
  - VOMITING [None]
  - MENTAL STATUS CHANGES [None]
  - DRY MOUTH [None]
  - POLYURIA [None]
  - CONFUSIONAL STATE [None]
  - KETONURIA [None]
  - METABOLIC ACIDOSIS [None]
  - IMPAIRED FASTING GLUCOSE [None]
  - DEHYDRATION [None]
